FAERS Safety Report 19192226 (Version 2)
Quarter: 2021Q2

REPORT INFORMATION
  Report Type: Spontaneous
  Country: US (occurrence: US)
  Receive Date: 20210429
  Receipt Date: 20210615
  Transmission Date: 20210717
  Serious: Yes (Hospitalization, Other)
  Sender: FDA-Public Use
  Company Number: US-AKCEA THERAPEUTICS, INC.-2021IS001195

PATIENT
  Age: 28 Year
  Sex: Male

DRUGS (6)
  1. LAMICTAL [Concomitant]
     Active Substance: LAMOTRIGINE
  2. ISSD (INTEGRATED SYRINGE SAFETY DEVICE) [Suspect]
     Active Substance: DEVICE
  3. TEGSEDI [Suspect]
     Active Substance: INOTERSEN SODIUM
     Indication: HEREDITARY NEUROPATHIC AMYLOIDOSIS
     Route: 058
     Dates: start: 20210309, end: 20210310
  4. TEGSEDI [Suspect]
     Active Substance: INOTERSEN SODIUM
     Route: 058
     Dates: start: 20210312
  5. KEPPRA [Concomitant]
     Active Substance: LEVETIRACETAM
  6. PYRIDOSTIGMINE [Concomitant]
     Active Substance: PYRIDOSTIGMINE

REACTIONS (15)
  - Chest pain [Unknown]
  - Loss of consciousness [Unknown]
  - Platelet count increased [Unknown]
  - Dyspnoea [Unknown]
  - Chills [Recovered/Resolved]
  - Nausea [Unknown]
  - Pain [Recovered/Resolved]
  - Nervousness [Unknown]
  - Lethargy [Unknown]
  - Hypersomnia [Unknown]
  - Adverse drug reaction [Recovered/Resolved]
  - Myalgia [Recovered/Resolved]
  - Ischaemia [Unknown]
  - Electrocardiogram change [Unknown]
  - Dysphagia [Unknown]

NARRATIVE: CASE EVENT DATE: 202103
